FAERS Safety Report 7639803-9 (Version None)
Quarter: 2011Q3

REPORT INFORMATION
  Report Type: 
  Country: None (occurrence: None)
  Receive Date: 20110727
  Receipt Date: 20110721
  Transmission Date: 20111222
  Serious: Yes (Death, Life-Threatening)
  Sender: FDA-Public Use
  Company Number: JP-CEPHALON-2011002265

PATIENT
  Sex: Male
  Weight: 47 kg

DRUGS (7)
  1. URSODIOL [Concomitant]
     Dates: start: 20101202, end: 20110521
  2. BENDAMUSTINE HCL [Suspect]
     Indication: B-CELL LYMPHOMA
     Route: 042
     Dates: start: 20110414, end: 20110415
  3. FENTANYL CITRATE [Concomitant]
     Dates: start: 20101202, end: 20110527
  4. VALGANCICLOVIR HYDROCHLORIDE (VALCYTE) [Concomitant]
     Dates: start: 20110406, end: 20110521
  5. GRANISETRON HYDROCHLORIDE [Concomitant]
  6. ACYCLOVIR [Concomitant]
     Dates: start: 20101202, end: 20110521
  7. PREDNISOLONE [Concomitant]
     Dates: start: 20101202, end: 20110521

REACTIONS (4)
  - DISEASE PROGRESSION [None]
  - PANCYTOPENIA [None]
  - NEUTROPHIL COUNT DECREASED [None]
  - FEBRILE NEUTROPENIA [None]
